FAERS Safety Report 14684815 (Version 6)
Quarter: 2018Q3

REPORT INFORMATION
  Report Type: Report from Study
  Country: US (occurrence: US)
  Receive Date: 20180327
  Receipt Date: 20180717
  Transmission Date: 20181010
  Serious: Yes (Hospitalization)
  Sender: FDA-Public Use
  Company Number: US-CLOVIS ONCOLOGY-CLO-2017-001482

PATIENT
  Age: 63 Year
  Sex: Female

DRUGS (5)
  1. RUBRACA [Suspect]
     Active Substance: RUCAPARIB CAMSYLATE
     Indication: OVARIAN CANCER
  2. ZOFRAN [Concomitant]
     Active Substance: ONDANSETRON HYDROCHLORIDE
     Indication: PRODUCT USED FOR UNKNOWN INDICATION
     Dosage: 8 MG, UNK
     Route: 065
  3. ZOFRAN [Concomitant]
     Active Substance: ONDANSETRON HYDROCHLORIDE
     Dosage: 4 MG, UNK
     Route: 065
  4. RUBRACA [Suspect]
     Active Substance: RUCAPARIB CAMSYLATE
     Indication: OVARIAN CANCER RECURRENT
     Dosage: 600 MG, BID
     Route: 048
     Dates: start: 20171214, end: 20180330
  5. RUBRACA [Suspect]
     Active Substance: RUCAPARIB CAMSYLATE
     Indication: ILL-DEFINED DISORDER

REACTIONS (13)
  - Malignant neoplasm progression [Unknown]
  - Dehydration [Unknown]
  - Fatigue [Unknown]
  - Obstruction [Unknown]
  - Gastroenteritis [Unknown]
  - Drug dose omission [Unknown]
  - Sluggishness [Unknown]
  - Abdominal pain [Not Recovered/Not Resolved]
  - Decreased appetite [Recovering/Resolving]
  - Malignant neoplasm progression [Unknown]
  - Malignant neoplasm progression [Not Recovered/Not Resolved]
  - Blood creatinine increased [Unknown]
  - Constipation [Recovering/Resolving]

NARRATIVE: CASE EVENT DATE: 201712
